FAERS Safety Report 9026390 (Version 2)
Quarter: 2013Q1

REPORT INFORMATION
  Report Type: Spontaneous
  Country: BR (occurrence: BR)
  Receive Date: 20130123
  Receipt Date: 20130128
  Transmission Date: 20140127
  Serious: Yes (Other)
  Sender: FDA-Public Use
  Company Number: PHHY2013BR005807

PATIENT
  Sex: Female
  Weight: 25 kg

DRUGS (4)
  1. EXJADE [Suspect]
     Indication: IRON OVERLOAD
     Dosage: 500 MG, UNK
     Dates: start: 2012
  2. HYDREA [Concomitant]
     Dosage: UNK UKN, UNK
  3. FOLIC ACID [Concomitant]
     Dosage: UNK UKN, UNK
  4. BLOOD TRANSFUSION, AUXILIARY PRODUCTS [Concomitant]
     Dosage: UNK UKN, UNK

REACTIONS (2)
  - Cerebral venous thrombosis [Unknown]
  - Serum ferritin increased [Unknown]
